FAERS Safety Report 7377768-8 (Version None)
Quarter: 2011Q1

REPORT INFORMATION
  Report Type: 
  Country: None (occurrence: None)
  Receive Date: 20110316
  Receipt Date: 20110304
  Transmission Date: 20110831
  Serious: Yes (Other)
  Sender: FDA-Public Use
  Company Number: 829643

PATIENT
  Age: 52 Year
  Sex: Female
  Weight: 120.86 kg

DRUGS (2)
  1. PROMETHAZINE [Concomitant]
  2. MEPERIDINE HCL [Suspect]
     Indication: PAIN
     Dosage: 75 MG, Q 4HR, PRN, INTRAMUSCULAR
     Route: 030
     Dates: start: 20110127, end: 20110131

REACTIONS (5)
  - NECROSIS [None]
  - FAT NECROSIS [None]
  - INJECTION SITE ABSCESS [None]
  - ABSCESS BACTERIAL [None]
  - SKIN NECROSIS [None]
